FAERS Safety Report 6857470-9 (Version None)
Quarter: 2010Q3

REPORT INFORMATION
  Report Type: 
  Country: None (occurrence: None)
  Receive Date: 20100719
  Receipt Date: 20100707
  Transmission Date: 20110219
  Serious: Yes (Other)
  Sender: FDA-Public Use
  Company Number: FR-ELI_LILLY_AND_COMPANY-FR201007001175

PATIENT
  Sex: Female

DRUGS (2)
  1. GEMZAR [Suspect]
     Indication: BREAST CANCER METASTATIC
     Dosage: 1250 MG/M2, UNK
     Route: 042
     Dates: start: 20100429, end: 20100520
  2. TAXOL [Concomitant]
     Indication: BREAST CANCER METASTATIC
     Dosage: 175 MG/M2, UNK
     Route: 042
     Dates: start: 20100429

REACTIONS (1)
  - CYTOLYTIC HEPATITIS [None]
